FAERS Safety Report 7304747-9 (Version None)
Quarter: 2011Q1

REPORT INFORMATION
  Report Type: 
  Country: None (occurrence: None)
  Receive Date: 20110222
  Receipt Date: 20110215
  Transmission Date: 20110831
  Serious: No
  Sender: FDA-Public Use
  Company Number: US-PFIZER INC-2011007373

PATIENT
  Sex: Male
  Weight: 79.365 kg

DRUGS (11)
  1. RANITIDINE [Concomitant]
     Dosage: UNK
  2. CALCIUM [Concomitant]
     Dosage: 600 MG, 2X/DAY
  3. LISINOPRIL [Concomitant]
     Dosage: UNK
  4. TYLENOL [Concomitant]
     Dosage: UNK
  5. PHENYTOIN [Concomitant]
     Dosage: UNK
  6. AVODART [Concomitant]
     Dosage: UNK
  7. PRISTIQ [Suspect]
     Indication: DEPRESSION
     Dosage: 50 MG, DAILY
     Route: 048
     Dates: start: 20090101
  8. FENTANYL [Concomitant]
     Dosage: UNK
  9. OXCARBAZEPINE [Concomitant]
     Dosage: UNK
  10. ASACOL [Concomitant]
     Dosage: UNK
  11. CANASA [Concomitant]
     Dosage: UNK

REACTIONS (2)
  - BLOOD CHOLESTEROL INCREASED [None]
  - GASTROOESOPHAGEAL REFLUX DISEASE [None]
